FAERS Safety Report 7706232-9 (Version None)
Quarter: 2011Q3

REPORT INFORMATION
  Report Type: 
  Country: None (occurrence: None)
  Receive Date: 20110824
  Receipt Date: 20110815
  Transmission Date: 20111222
  Serious: No
  Sender: FDA-Public Use
  Company Number: US-BAYER-2011-073535

PATIENT
  Age: 57 Year
  Sex: Male
  Weight: 120 kg

DRUGS (1)
  1. SARGRAMOSTIM [Suspect]

REACTIONS (8)
  - THROMBOCYTOPENIA [None]
  - ESCHERICHIA TEST POSITIVE [None]
  - ENTEROCOCCUS TEST POSITIVE [None]
  - FEBRILE NEUTROPENIA [None]
  - RASH GENERALISED [None]
  - NAUSEA [None]
  - VOMITING [None]
  - NEUTROPENIA [None]
